FAERS Safety Report 8538071-3 (Version None)
Quarter: 2012Q3

REPORT INFORMATION
  Report Type: 
  Country: None (occurrence: None)
  Receive Date: 20120725
  Receipt Date: 20120716
  Transmission Date: 20120928
  Serious: Yes (Hospitalization)
  Sender: FDA-Public Use
  Company Number: TR-PFIZER INC-2010040842

PATIENT
  Age: 40 Year
  Sex: Male
  Weight: 63 kg

DRUGS (4)
  1. DELTACORTRIL [Concomitant]
     Dosage: 5 MG, UNK
     Dates: start: 19960101
  2. TACROLIMUS [Concomitant]
     Dosage: 2 MG, UNK
     Dates: start: 20100316
  3. AZATHIOPRINE [Concomitant]
     Dosage: 50 MG, UNK
     Dates: start: 19960101
  4. RAPAMUNE [Suspect]
     Dosage: 1 MG, 2X/DAY
     Route: 048
     Dates: start: 20070101, end: 20100316

REACTIONS (2)
  - BLOOD CREATINE INCREASED [None]
  - BLOOD UREA INCREASED [None]
